FAERS Safety Report 25456599 (Version 1)
Quarter: 2025Q2

REPORT INFORMATION
  Report Type: Spontaneous
  Country: US (occurrence: US)
  Receive Date: 20250619
  Receipt Date: 20250619
  Transmission Date: 20250717
  Serious: No
  Sender: FRESENIUS KABI
  Company Number: US-FreseniusKabi-FK202507972

PATIENT
  Age: 42 Year
  Sex: Female

DRUGS (2)
  1. IDACIO [Suspect]
     Active Substance: ADALIMUMAB-AACF
     Indication: Product used for unknown indication
     Dosage: FORM OF ADMINISTRATION: INJECTION?ROUTE OF ADMINISTRATION: UNKNOWN
  2. HUMIRA [Suspect]
     Active Substance: ADALIMUMAB
     Indication: Product used for unknown indication
     Dosage: LOT: NOT AVAILABLE
     Route: 058
     Dates: start: 20190331, end: 202501

REACTIONS (6)
  - Rash pruritic [Not Recovered/Not Resolved]
  - Migraine [Not Recovered/Not Resolved]
  - Onychalgia [Not Recovered/Not Resolved]
  - Unexpected vaginal bleeding on hormonal IUD [Not Recovered/Not Resolved]
  - Arthralgia [Not Recovered/Not Resolved]
  - Condition aggravated [Not Recovered/Not Resolved]

NARRATIVE: CASE EVENT DATE: 20250224
